FAERS Safety Report 4838542-7 (Version None)
Quarter: 2005Q4

REPORT INFORMATION
  Report Type: 
  Country: None (occurrence: None)
  Receive Date: 20051129
  Receipt Date: 20051121
  Transmission Date: 20060501
  Serious: Yes (Life-Threatening, Hospitalization)
  Sender: FDA-Public Use
  Company Number: AU-MERCK-0511AUS00319

PATIENT
  Age: 83 Year
  Sex: Female

DRUGS (2)
  1. FOSAMAX [Suspect]
     Indication: OSTEOPOROSIS
     Route: 048
     Dates: end: 20020101
  2. FOSAMAX [Suspect]
     Route: 048
     Dates: start: 20050801

REACTIONS (3)
  - HYPERTENSION [None]
  - KIDNEY INFECTION [None]
  - OESOPHAGEAL HAEMORRHAGE [None]
